FAERS Safety Report 5392630-8 (Version None)
Quarter: 2007Q3

REPORT INFORMATION
  Report Type: 
  Country: None (occurrence: None)
  Receive Date: 20070720
  Receipt Date: 20070712
  Transmission Date: 20080115
  Serious: Yes (Hospitalization)
  Sender: FDA-Public Use
  Company Number: FR-MERCK-0704FRA00089

PATIENT
  Age: 62 Year
  Sex: Female
  Weight: 42 kg

DRUGS (6)
  1. FOSAMAX [Suspect]
     Indication: OSTEOPOROSIS
     Route: 048
  2. URSODIOL [Suspect]
     Indication: CHOLANGITIS SCLEROSING
     Route: 048
  3. AZATHIOPRINE [Suspect]
     Indication: COLITIS ULCERATIVE
     Route: 048
     Dates: start: 20061201, end: 20070212
  4. MESALAMINE [Suspect]
     Indication: COLITIS ULCERATIVE
     Route: 048
     Dates: start: 20060101
  5. ESOMEPRAZOLE MAGNESIUM [Suspect]
     Route: 048
  6. LEVOCETIRIZINE HYDROCHLORIDE [Suspect]
     Route: 048

REACTIONS (1)
  - APLASTIC ANAEMIA [None]
